FAERS Safety Report 5954118-2 (Version None)
Quarter: 2008Q4

REPORT INFORMATION
  Report Type: 
  Country: None (occurrence: None)
  Receive Date: 20081117
  Receipt Date: 20081106
  Transmission Date: 20090506
  Serious: Yes (Hospitalization)
  Sender: FDA-Public Use
  Company Number: JP-SP-2008-03364

PATIENT
  Age: 77 Year
  Sex: Male

DRUGS (1)
  1. IMMUCYST [Suspect]
     Indication: BLADDER CANCER
     Route: 043
     Dates: start: 20080701, end: 20080812

REACTIONS (4)
  - MALAISE [None]
  - POLLAKIURIA [None]
  - PYREXIA [None]
  - TUBERCULOSIS OF GENITOURINARY SYSTEM [None]
